FAERS Safety Report 9421168 (Version 1)
Quarter: 2013Q3

REPORT INFORMATION
  Report Type: Spontaneous
  Country: IN (occurrence: IN)
  Receive Date: 20130725
  Receipt Date: 20130725
  Transmission Date: 20140515
  Serious: Yes (Death, Hospitalization)
  Sender: FDA-Public Use
  Company Number: PHHY2013IN078156

PATIENT
  Age: 50 Year
  Sex: Male

DRUGS (1)
  1. LEFLUNOMIDE [Suspect]
     Indication: ARTHRALGIA
     Dosage: 10 MG, BID

REACTIONS (19)
  - Peritonitis [Fatal]
  - Drug reaction with eosinophilia and systemic symptoms [Unknown]
  - Pyrexia [Unknown]
  - Diarrhoea [Unknown]
  - Rash erythematous [Unknown]
  - Oliguria [Unknown]
  - Skin exfoliation [Unknown]
  - Mucosal inflammation [Unknown]
  - Leukocytosis [Unknown]
  - Eosinophilia [Unknown]
  - Renal failure acute [Unknown]
  - Hepatic enzyme increased [Unknown]
  - Tubulointerstitial nephritis [Unknown]
  - Granuloma [Unknown]
  - Hepatitis [Unknown]
  - Cough [Unknown]
  - Abdominal pain upper [Unknown]
  - Lung infiltration [Unknown]
  - Duodenal ulcer [Unknown]
